FAERS Safety Report 6413499-6 (Version None)
Quarter: 2009Q4

REPORT INFORMATION
  Report Type: 
  Country: None (occurrence: None)
  Receive Date: 20091026
  Receipt Date: 20091022
  Transmission Date: 20100525
  Serious: Yes (Life-Threatening, Hospitalization, Other)
  Sender: FDA-Public Use
  Company Number: PHHY2009JP29256

PATIENT
  Sex: Male

DRUGS (14)
  1. TEGRETOL [Suspect]
     Indication: STATUS EPILEPTICUS
     Dosage: 800 MG DAILY
     Route: 048
     Dates: start: 20090630, end: 20090702
  2. DEPAKENE [Suspect]
     Indication: CONVULSION
     Dosage: UNK
     Route: 048
     Dates: start: 20060101
  3. DEPAKENE [Suspect]
     Indication: EPILEPSY
     Dosage: 1200 MG
     Route: 048
     Dates: start: 20090326
  4. DEPAKENE [Suspect]
     Dosage: 6TABLETS DAILY
     Route: 048
     Dates: end: 20090531
  5. EXCEGRAN [Suspect]
     Indication: EPILEPSY
     Dosage: 200 MG
     Route: 048
     Dates: start: 20090601, end: 20090715
  6. EXCEGRAN [Suspect]
     Dosage: 400 MG DAILY
     Route: 048
     Dates: start: 20090604
  7. TOPIRAMATE [Suspect]
     Indication: EPILEPSY
     Dosage: 100 MG DAILY
     Route: 048
     Dates: start: 20090603
  8. TOPIRAMATE [Suspect]
     Dosage: 300 MG
     Route: 048
     Dates: start: 20090630
  9. PHENOBARBITAL TAB [Suspect]
     Dosage: 200 MG DAILY
     Route: 048
     Dates: start: 20090610, end: 20090715
  10. ALEVIATIN [Concomitant]
     Indication: EPILEPSY
     Dosage: UNK
     Route: 048
     Dates: start: 20090625
  11. DIPRIVAN [Concomitant]
     Indication: EPILEPSY
     Route: 042
  12. DIPRIVAN [Concomitant]
     Indication: AGITATION
  13. ISOZOL [Concomitant]
     Indication: AGITATION
     Dosage: UNK
     Dates: start: 20090612, end: 20090616
  14. TEMODAL [Concomitant]

REACTIONS (13)
  - APPARENT DEATH [None]
  - DERMATITIS [None]
  - DIALYSIS [None]
  - DRUG HYPERSENSITIVITY [None]
  - DRUG RASH WITH EOSINOPHILIA AND SYSTEMIC SYMPTOMS [None]
  - DYSPNOEA [None]
  - HEPATIC FUNCTION ABNORMAL [None]
  - PNEUMONIA [None]
  - PYREXIA [None]
  - RASH [None]
  - RENAL IMPAIRMENT [None]
  - SKIN EXFOLIATION [None]
  - STEVENS-JOHNSON SYNDROME [None]
